FAERS Safety Report 18041305 (Version 1)
Quarter: 2020Q3

REPORT INFORMATION
  Report Type: Report from Study
  Country: IN (occurrence: IN)
  Receive Date: 20200719
  Receipt Date: 20200719
  Transmission Date: 20201103
  Serious: Yes (Other)
  Sender: FDA-Public Use
  Company Number: NVSC2020IN007319

PATIENT
  Age: 36 Year
  Sex: Male
  Weight: 87 kg

DRUGS (2)
  1. GALVUS MET [Suspect]
     Active Substance: METFORMIN HYDROCHLORIDE\VILDAGLIPTIN
     Dosage: 1 DF  (METFORMIN 500 OT, VILDAGLIPTIN 50 OT), BID (1?0?1)
     Route: 048
  2. GALVUS MET [Suspect]
     Active Substance: METFORMIN HYDROCHLORIDE\VILDAGLIPTIN
     Indication: DIABETES MELLITUS
     Dosage: 1 DF (METFORMIN 500 OT, VILDAGLIPTIN 50 OT), BID  (POST MEAL) (SINCE 7 MONTHS)
     Route: 048

REACTIONS (10)
  - Nephrolithiasis [Unknown]
  - Renal disorder [Unknown]
  - Laziness [Unknown]
  - Dizziness [Not Recovered/Not Resolved]
  - Fatigue [Unknown]
  - Hypotension [Unknown]
  - Weight decreased [Unknown]
  - Blood cholesterol increased [Unknown]
  - Hypertension [Unknown]
  - Hyperglycaemia [Not Recovered/Not Resolved]

NARRATIVE: CASE EVENT DATE: 20200111
